FAERS Safety Report 20535217 (Version 1)
Quarter: 2022Q1

REPORT INFORMATION
  Report Type: Spontaneous
  Country: FR (occurrence: FR)
  Receive Date: 20220302
  Receipt Date: 20220302
  Transmission Date: 20220423
  Serious: Yes (Hospitalization)
  Sender: FDA-Public Use
  Company Number: None

PATIENT
  Age: 61 Year
  Sex: Female
  Weight: 57 kg

DRUGS (2)
  1. VORICONAZOLE [Suspect]
     Active Substance: VORICONAZOLE
     Indication: Bronchopulmonary aspergillosis
     Dosage: 500 MILLIGRAM DAILY; 500MG*1X/D
     Route: 048
     Dates: start: 20210624, end: 20211223
  2. NEORAL [Suspect]
     Active Substance: CYCLOSPORINE
     Indication: Transplant
     Dosage: 170 MILLIGRAM DAILY; 170MG*1X/D
     Route: 048
     Dates: start: 20210608

REACTIONS (2)
  - Metabolic encephalopathy [Recovered/Resolved]
  - Condition aggravated [Recovered/Resolved]

NARRATIVE: CASE EVENT DATE: 20210624
